FAERS Safety Report 5030130-5 (Version None)
Quarter: 2006Q2

REPORT INFORMATION
  Report Type: 
  Country: None (occurrence: None)
  Receive Date: 20060614
  Receipt Date: 20060531
  Transmission Date: 20061013
  Serious: No
  Sender: FDA-Public Use
  Company Number: CH200605001153

PATIENT
  Age: 40 Year
  Sex: Female

DRUGS (6)
  1. ZYPREXA [Suspect]
     Indication: SCHIZOPHRENIA, PARANOID TYPE
     Dosage: SEE IMAGE
     Route: 048
     Dates: start: 20020101
  2. ZYPREXA [Suspect]
     Indication: SCHIZOPHRENIA, PARANOID TYPE
     Dosage: SEE IMAGE
     Route: 048
     Dates: start: 20050101
  3. ZYPREXA [Suspect]
     Indication: SCHIZOPHRENIA, PARANOID TYPE
     Dosage: SEE IMAGE
     Route: 048
     Dates: start: 20050901
  4. VOLTAREN [Concomitant]
  5. PANTOZOL /GFR/ (PANTOPRAZOLE SODIUM) [Concomitant]
  6. FERRUM (FERROUS FUMARATE) [Concomitant]

REACTIONS (3)
  - DYSKINESIA [None]
  - LEUKOPENIA [None]
  - PRESCRIBED OVERDOSE [None]
